FAERS Safety Report 8085626-9 (Version None)
Quarter: 2012Q1

REPORT INFORMATION
  Report Type: 
  Country: None (occurrence: None)
  Receive Date: 20120128
  Receipt Date: 20110411
  Transmission Date: 20120608
  Serious: No
  Sender: FDA-Public Use
  Company Number: US-ABBOTT-11P-163-0715930-00

PATIENT
  Age: 30 Year
  Sex: Female

DRUGS (5)
  1. OTC CLARITIN [Concomitant]
     Indication: SEASONAL ALLERGY
  2. FLAGYL [Concomitant]
     Indication: CROHN'S DISEASE
     Dosage: NIGHTLY
  3. LOESTRIN 1.5/30 [Concomitant]
     Indication: CONTRACEPTION
  4. OTC CLARITIN [Concomitant]
     Indication: HYPERSENSITIVITY
  5. HUMIRA [Suspect]
     Indication: CROHN'S DISEASE
     Dates: start: 20100801

REACTIONS (3)
  - DEVICE MALFUNCTION [None]
  - INCORRECT DOSE ADMINISTERED [None]
  - INJECTION SITE PAIN [None]
